FAERS Safety Report 4620899-3 (Version None)
Quarter: 2005Q1

REPORT INFORMATION
  Report Type: 
  Country: None (occurrence: None)
  Receive Date: 20050325
  Receipt Date: 20050318
  Transmission Date: 20050727
  Serious: Yes (Hospitalization)
  Sender: FDA-Public Use
  Company Number: 2005-126607-NL

PATIENT
  Sex: Male

DRUGS (2)
  1. MIRTAZAPINE [Suspect]
     Indication: DEPRESSION
     Dosage: 30 MG QD
     Route: 048
     Dates: start: 20050125, end: 20050204
  2. VENLAFAXINE HCL [Suspect]
     Indication: DEPRESSION
     Dosage: 225 MG QD
     Route: 048
     Dates: start: 20050125, end: 20050204

REACTIONS (4)
  - DISTURBANCE IN ATTENTION [None]
  - DRUG INTERACTION [None]
  - HEADACHE [None]
  - SEROTONIN SYNDROME [None]
